FAERS Safety Report 4367665-4 (Version None)
Quarter: 2004Q2

REPORT INFORMATION
  Report Type: 
  Country: None (occurrence: None)
  Receive Date: 20040526
  Receipt Date: 20040302
  Transmission Date: 20050107
  Serious: No
  Sender: FDA-Public Use
  Company Number: 2004US002043

PATIENT
  Age: 29 Year
  Sex: Female
  Weight: 75.7 kg

DRUGS (4)
  1. ALOXI [Suspect]
     Indication: PROPHYLAXIS OF NAUSEA AND VOMITING
     Dosage: 0.25 MG, SINGLE, INTRAVENOUS
     Route: 042
     Dates: start: 20040213, end: 20040213
  2. ALOXI [Suspect]
     Indication: PROPHYLAXIS OF NAUSEA AND VOMITING
     Dosage: 0.25 MG, SINGLE, INTRAVENOUS
     Route: 042
     Dates: start: 20040227, end: 20040227
  3. ADRIAMYCIN PFS [Concomitant]
  4. CYTOXAN [Concomitant]

REACTIONS (2)
  - INJECTION SITE DISCOMFORT [None]
  - INJECTION SITE INDURATION [None]
